FAERS Safety Report 9829286 (Version 2)
Quarter: 2014Q1

REPORT INFORMATION
  Report Type: Report from Study
  Country: FR (occurrence: FR)
  Receive Date: 20140120
  Receipt Date: 20140124
  Transmission Date: 20141002
  Serious: Yes (Hospitalization)
  Sender: FDA-Public Use
  Company Number: FR-ROCHE-1335388

PATIENT
  Age: 86 Year
  Sex: Male
  Weight: 61 kg

DRUGS (1)
  1. METHOXY POLYETHYLENE GLYCOL-EPOETIN BETA [Suspect]
     Indication: RENAL FAILURE CHRONIC
     Route: 065
     Dates: end: 20131015

REACTIONS (2)
  - Ischaemic stroke [Recovered/Resolved]
  - Confusional state [Recovered/Resolved]
